FAERS Safety Report 24096413 (Version 2)
Quarter: 2024Q3

REPORT INFORMATION
  Report Type: Spontaneous
  Country: US (occurrence: US)
  Receive Date: 20240716
  Receipt Date: 20240805
  Transmission Date: 20241016
  Serious: Yes (Life-Threatening, Hospitalization)
  Sender: TEVA
  Company Number: US-TEVA-VS-3218284

PATIENT
  Age: 62 Year
  Sex: Male

DRUGS (1)
  1. EPINEPHRINE [Suspect]
     Active Substance: EPINEPHRINE
     Indication: Haemostasis
     Dosage: ADMINISTERED 10ML OF 1MG/ML OF EPINEPHRINE
     Route: 065

REACTIONS (7)
  - Hypertension [Recovering/Resolving]
  - Toxicity to various agents [Recovering/Resolving]
  - Pulmonary oedema [Recovering/Resolving]
  - Myocardial ischaemia [Recovering/Resolving]
  - Accidental overdose [Unknown]
  - Multiple organ dysfunction syndrome [Recovering/Resolving]
  - Tachycardia [Recovering/Resolving]
